FAERS Safety Report 10580947 (Version 2)
Quarter: 2014Q4

REPORT INFORMATION
  Report Type: Spontaneous
  Country: GB (occurrence: None)
  Receive Date: 20141110
  Receipt Date: 20141204
  Transmission Date: 20150529
  Serious: Yes (Other)
  Sender: FDA-Public Use
  Company Number: ADR-2014-02060

PATIENT
  Age: 44 Year

DRUGS (6)
  1. BACLOFEN. [Suspect]
     Active Substance: BACLOFEN
     Indication: LIMB DISCOMFORT
     Dosage: 5 MG TID; SEE B5
  2. AMANTADINE [Suspect]
     Active Substance: AMANTADINE
  3. BACLOFEN. [Suspect]
     Active Substance: BACLOFEN
     Indication: MULTIPLE SCLEROSIS
     Dosage: 5 MG TID; SEE B5
  4. GABAPENTIN. [Suspect]
     Active Substance: GABAPENTIN
  5. CARBAMAZEPINE. [Suspect]
     Active Substance: CARBAMAZEPINE
     Dosage: 400 MG/DAY; SEE B5
  6. COPAXONE [Suspect]
     Active Substance: GLATIRAMER ACETATE

REACTIONS (13)
  - Unevaluable event [None]
  - Head injury [None]
  - Fall [None]
  - Pain in extremity [None]
  - Ataxia [None]
  - Multiple sclerosis [None]
  - Autism spectrum disorder [None]
  - Dyskinesia [None]
  - Haemorrhage [None]
  - Dizziness [None]
  - Conjunctival haemorrhage [None]
  - Joint lock [None]
  - Muscular weakness [None]

NARRATIVE: CASE EVENT DATE: 20090326
